FAERS Safety Report 22537816 (Version 1)
Quarter: 2023Q2

REPORT INFORMATION
  Report Type: Spontaneous
  Country: MY (occurrence: MY)
  Receive Date: 20230608
  Receipt Date: 20230608
  Transmission Date: 20230722
  Serious: Yes (Other)
  Sender: FDA-Public Use
  Company Number: MY-BAUSCHBL-2023BNL004763

PATIENT
  Sex: Female

DRUGS (2)
  1. GENTAMICIN [Suspect]
     Active Substance: GENTAMICIN
     Indication: Sepsis neonatal
     Route: 065
  2. PENICILLIN [Concomitant]
     Active Substance: PENICILLIN
     Indication: Sepsis neonatal
     Route: 042

REACTIONS (1)
  - Myasthenia gravis neonatal [Recovered/Resolved]
